FAERS Safety Report 5711271-3 (Version None)
Quarter: 2008Q2

REPORT INFORMATION
  Report Type: 
  Country: None (occurrence: None)
  Receive Date: 20080415
  Receipt Date: 20080331
  Transmission Date: 20081010
  Serious: Yes (Hospitalization)
  Sender: FDA-Public Use
  Company Number: CIP06001598

PATIENT
  Age: 69 Year
  Sex: Female

DRUGS (4)
  1. ACTONEL [Suspect]
     Indication: OSTEOPOROSIS
     Dosage: ORAL
     Route: 048
     Dates: start: 20000101
  2. FOSAMAX [Suspect]
     Indication: OSTEOPOROSIS
     Dosage: 1 DF, ORAL
     Route: 048
     Dates: start: 19980101
  3. LEVOTHYROXINE SODIUM [Concomitant]
  4. DRUG NOS [Concomitant]

REACTIONS (24)
  - ARTHRALGIA [None]
  - BLOOD IRON DECREASED [None]
  - BLOOD THYROID STIMULATING HORMONE DECREASED [None]
  - BONE GRAFT [None]
  - BRUXISM [None]
  - EDENTULOUS [None]
  - GINGIVAL ULCERATION [None]
  - HYPOAESTHESIA [None]
  - HYPOAESTHESIA ORAL [None]
  - MELANOCYTIC NAEVUS [None]
  - MITRAL VALVE INCOMPETENCE [None]
  - MITRAL VALVE PROLAPSE [None]
  - NERVE INJURY [None]
  - ORAL DISCHARGE [None]
  - OSTEOMYELITIS [None]
  - OSTEONECROSIS [None]
  - POST PROCEDURAL SEPSIS [None]
  - RESORPTION BONE INCREASED [None]
  - ROAD TRAFFIC ACCIDENT [None]
  - SCAR [None]
  - TOOTH LOSS [None]
  - TRANSFERRIN SATURATION DECREASED [None]
  - TRAUMATIC ULCER [None]
  - WHIPLASH INJURY [None]
